FAERS Safety Report 6636275-8 (Version None)
Quarter: 2010Q1

REPORT INFORMATION
  Report Type: 
  Country: None (occurrence: None)
  Receive Date: 20100226
  Receipt Date: 20100209
  Transmission Date: 20100710
  Serious: Yes (Other)
  Sender: FDA-Public Use
  Company Number: 2010-00235

PATIENT
  Age: 66 Year
  Sex: Female
  Weight: 56.246 kg

DRUGS (15)
  1. ZICAM COLD REMEDY RAPIDMELTS [Suspect]
     Dosage: EVERY 4 HOURS - 2/3 DAYS
     Dates: start: 20090101
  2. ZICAM COLD REMEDY ORAL MIST [Suspect]
     Dosage: BID - 1 DAY
     Dates: start: 20100214, end: 20100215
  3. SAVELLA [Concomitant]
  4. URSO 250 [Concomitant]
  5. VALTREX [Concomitant]
  6. CYTOMEL [Concomitant]
  7. HYDROCHLOROTHIAZIDE [Concomitant]
  8. LISINOPRIL [Concomitant]
  9. CELEBREX [Concomitant]
  10. SPIRIVA [Concomitant]
  11. PROAIR HFA [Concomitant]
  12. CENTRUM SILVER MULTIVITAMIN [Concomitant]
  13. VITAMIN B-12 [Concomitant]
  14. SUBLINGUAL [Concomitant]
  15. CALCIUM CITRATE [Concomitant]

REACTIONS (1)
  - AGEUSIA [None]
